FAERS Safety Report 7747667-8 (Version None)
Quarter: 2011Q3

REPORT INFORMATION
  Report Type: 
  Country: None (occurrence: None)
  Receive Date: 20110909
  Receipt Date: 20110902
  Transmission Date: 20111222
  Serious: Yes (Hospitalization)
  Sender: FDA-Public Use
  Company Number: 201111134

PATIENT
  Sex: Female

DRUGS (1)
  1. LIORESAL [Suspect]
     Indication: MUSCLE SPASTICITY
     Dosage: 119 MCG, DAILY, INTRATHECAL
     Route: 037

REACTIONS (6)
  - HEADACHE [None]
  - FAT TISSUE INCREASED [None]
  - MUSCLE SPASTICITY [None]
  - CSF TEST ABNORMAL [None]
  - AREFLEXIA [None]
  - CONFUSIONAL STATE [None]
